FAERS Safety Report 5977551-1 (Version None)
Quarter: 2008Q4

REPORT INFORMATION
  Report Type: 
  Country: None (occurrence: None)
  Receive Date: 20081201
  Receipt Date: 20081201
  Transmission Date: 20090506
  Serious: Yes (Other)
  Sender: FDA-Public Use
  Company Number: None

PATIENT

DRUGS (1)
  1. FLUOXETINE [Suspect]
     Dates: start: 20081002, end: 20081003

REACTIONS (1)
  - DRUG INEFFECTIVE [None]
